FAERS Safety Report 9784079 (Version 1)
Quarter: 2013Q4

REPORT INFORMATION
  Report Type: Spontaneous
  Country: CH (occurrence: CH)
  Receive Date: 20131226
  Receipt Date: 20131226
  Transmission Date: 20140711
  Serious: Yes (Hospitalization)
  Sender: FDA-Public Use
  Company Number: CH-TEVA-452143ISR

PATIENT
  Age: 76 Year
  Sex: Female

DRUGS (4)
  1. COMILORID-MEPHA [Suspect]
     Indication: ESSENTIAL HYPERTENSION
     Dosage: 2 DOSAGE FORMS DAILY; 1 DF = 5MG AMILORID + 50MG HYDROCHLOROTHIAZIDE
     Route: 048
     Dates: end: 201311
  2. FLUANXOL [Concomitant]
     Indication: SCHIZOPHRENIA
     Dosage: .5 MILLIGRAM DAILY;
     Route: 048
  3. HALDOL [Concomitant]
     Indication: PRODUCT USED FOR UNKNOWN INDICATION
     Dosage: .5 MILLIGRAM DAILY;
     Route: 048
     Dates: end: 201311
  4. OLFEN [Concomitant]
     Indication: PRODUCT USED FOR UNKNOWN INDICATION
     Dosage: 50 MILLIGRAM DAILY;
     Route: 048
     Dates: end: 201311

REACTIONS (5)
  - Atrial fibrillation [Unknown]
  - Cardiac failure [Recovered/Resolved]
  - Hyponatraemia [Recovered/Resolved]
  - Asthenia [Recovered/Resolved]
  - Ileus paralytic [Unknown]
